FAERS Safety Report 23146159 (Version 15)
Quarter: 2024Q3

REPORT INFORMATION
  Report Type: Spontaneous
  Country: CA (occurrence: CA)
  Receive Date: 20231104
  Receipt Date: 20240904
  Transmission Date: 20241016
  Serious: Yes (Hospitalization, Other)
  Sender: CELLTRION
  Company Number: CA-CELLTRION INC.-2023CA021261

PATIENT

DRUGS (6)
  1. INFLECTRA [Suspect]
     Active Substance: INFLIXIMAB-DYYB
     Indication: Colitis ulcerative
     Dosage: 600 MG, AT WEEK 2 AND 6 THEN Q 8 WEEKS (WEEK 0 WAS REMICADE ON 20SEP2023 IN HOSPITAL)
     Route: 042
     Dates: start: 20231004
  2. INFLECTRA [Suspect]
     Active Substance: INFLIXIMAB-DYYB
     Dosage: 600 MG, AFTER 4 WEEKS (WEEK 6 INDUCTION)
     Route: 042
     Dates: start: 20231117
  3. INFLECTRA [Suspect]
     Active Substance: INFLIXIMAB-DYYB
     Dosage: 600 MG (10 MG/KG), EVERY 4 WEEKS
     Route: 042
     Dates: start: 20231213
  4. INFLECTRA [Suspect]
     Active Substance: INFLIXIMAB-DYYB
     Dosage: 600 MG (10 MG/KG), EVERY 4 WEEKS
     Route: 042
     Dates: start: 20240507
  5. COVID-19 VACCINE [Concomitant]
     Indication: COVID-19 immunisation
     Dosage: DOSE NUMBER UNKNOWN, SINGLE
     Dates: start: 20231023, end: 20231023
  6. IRON [Concomitant]
     Active Substance: IRON
     Dosage: UNK (PILLS)

REACTIONS (10)
  - Intestinal perforation [Unknown]
  - Fall [Unknown]
  - Hip fracture [Unknown]
  - Condition aggravated [Recovered/Resolved]
  - Hip surgery [Recovered/Resolved]
  - Malignant melanoma [Unknown]
  - Hypoacusis [Unknown]
  - Flatulence [Unknown]
  - Off label use [Unknown]
  - Off label use [Unknown]

NARRATIVE: CASE EVENT DATE: 20231001
